FAERS Safety Report 6306518-9 (Version None)
Quarter: 2009Q3

REPORT INFORMATION
  Report Type: 
  Country: None (occurrence: None)
  Receive Date: 20090812
  Receipt Date: 20090803
  Transmission Date: 20100115
  Serious: Yes (Other)
  Sender: FDA-Public Use
  Company Number: GB-WATSON-2009-06226

PATIENT
  Age: 72 Year

DRUGS (2)
  1. ETOPOSIDE [Suspect]
     Indication: SMALL CELL LUNG CANCER STAGE UNSPECIFIED
     Dosage: UNK
  2. CARBOPLATIN [Suspect]
     Indication: OVARIAN CANCER
     Dosage: UNK

REACTIONS (1)
  - ACUTE MYELOID LEUKAEMIA [None]
